FAERS Safety Report 19946551 (Version 1)
Quarter: 2021Q4

REPORT INFORMATION
  Report Type: Spontaneous
  Country: DE (occurrence: DE)
  Receive Date: 20211012
  Receipt Date: 20211012
  Transmission Date: 20220303
  Serious: Yes (Hospitalization)
  Sender: FDA-Public Use
  Company Number: DE-ADRED-06505-01

PATIENT
  Age: 38 Year
  Sex: Male
  Weight: 88 kg

DRUGS (1)
  1. IBUPROFEN [Suspect]
     Active Substance: IBUPROFEN
     Indication: Product used for unknown indication
     Dosage: 600 MG, BEI BEDARF, TABLETTEN
     Route: 048

REACTIONS (3)
  - Weight decreased [Unknown]
  - Nausea [Unknown]
  - Vomiting [Unknown]
